FAERS Safety Report 25596033 (Version 1)
Quarter: 2025Q3

REPORT INFORMATION
  Report Type: Spontaneous
  Country: CH (occurrence: CH)
  Receive Date: 20250723
  Receipt Date: 20250723
  Transmission Date: 20251020
  Serious: Yes (Hospitalization, Other)
  Sender: SANOFI AVENTIS
  Company Number: CH-DialogSolutions-SAAVPROD-PI802032-C1

PATIENT
  Age: 74 Year
  Sex: Male

DRUGS (1)
  1. LEFLUNOMIDE [Suspect]
     Active Substance: LEFLUNOMIDE
     Indication: Rheumatoid arthritis

REACTIONS (16)
  - Rheumatoid nodule [Recovering/Resolving]
  - Pulmonary toxicity [Unknown]
  - Fatigue [Recovering/Resolving]
  - Dyspnoea exertional [Recovering/Resolving]
  - Leukocytosis [Recovering/Resolving]
  - Neutrophilia [Recovering/Resolving]
  - Anaemia [Recovering/Resolving]
  - Pyrexia [Recovering/Resolving]
  - Lung consolidation [Recovering/Resolving]
  - Pulmonary mass [Recovering/Resolving]
  - Pulmonary cavitation [Recovering/Resolving]
  - Organising pneumonia [Recovering/Resolving]
  - Pulmonary necrosis [Recovering/Resolving]
  - Bronchiectasis [Unknown]
  - Pneumonia [Unknown]
  - Lung opacity [Unknown]
